FAERS Safety Report 6145679-1 (Version None)
Quarter: 2009Q2

REPORT INFORMATION
  Report Type: 
  Country: None (occurrence: None)
  Receive Date: 20090407
  Receipt Date: 20090402
  Transmission Date: 20091009
  Serious: Yes (Disabling)
  Sender: FDA-Public Use
  Company Number: FR-BRISTOL-MYERS SQUIBB COMPANY-14546295

PATIENT
  Age: 64 Year
  Sex: Female
  Weight: 73 kg

DRUGS (8)
  1. APROVEL FILM-COATED TABS 150 MG [Suspect]
     Indication: HYPERTENSION
     Route: 048
     Dates: start: 20050525, end: 20070406
  2. LIPANTHYL [Suspect]
     Indication: DYSLIPIDAEMIA
     Dosage: FORM=CAPS
     Route: 048
     Dates: start: 20050525, end: 20080716
  3. ALDACTAZINE [Concomitant]
     Indication: HYPERTENSION
     Dosage: 1 DF= 1 TAB
     Route: 048
     Dates: start: 20050525
  4. NICARDIPINE HCL [Concomitant]
     Indication: HYPERTENSION
     Dosage: FORM=CAPS
     Route: 048
     Dates: start: 20050525
  5. DIAMICRON [Concomitant]
     Indication: TYPE 2 DIABETES MELLITUS
     Dosage: FORM=TABS
     Route: 048
     Dates: start: 20050525
  6. KARDEGIC [Concomitant]
     Indication: CEREBROVASCULAR ACCIDENT
     Dosage: 1 SACHET
     Route: 048
     Dates: start: 20050525
  7. TEGRETOL [Concomitant]
     Indication: CEREBROVASCULAR ACCIDENT
     Dosage: 1 DF= 1 TAB;STRENGTH:400
     Dates: start: 20050525, end: 20080908
  8. LEVOTHYROXINE SODIUM [Concomitant]
     Indication: HYPOTHYROIDISM
     Route: 048
     Dates: start: 20050525

REACTIONS (2)
  - BLOOD CREATINE PHOSPHOKINASE INCREASED [None]
  - MYALGIA [None]
